FAERS Safety Report 5298317-4 (Version None)
Quarter: 2007Q2

REPORT INFORMATION
  Report Type: 
  Country: None (occurrence: None)
  Receive Date: 20070409
  Receipt Date: 20070327
  Transmission Date: 20071010
  Serious: Yes (Other)
  Sender: FDA-Public Use
  Company Number: B0464595A

PATIENT
  Age: 63 Year
  Sex: Female

DRUGS (5)
  1. RANITIDINE HCL [Suspect]
     Indication: DRUG USE FOR UNKNOWN INDICATION
     Dosage: UNK, INTRAVENOUS
     Route: 042
     Dates: start: 20041201
  2. DEXCHLORPHENIRAMINE MALEATE [Suspect]
     Indication: DRUG USE FOR UNKNOWN INDICATION
     Dosage: UNK; INTRAVENOUS
     Route: 042
  3. METHYLPREDNISOLONE 16MG TAB [Concomitant]
  4. GRANISETRON  HCL [Concomitant]
  5. CANCER CHEMOTHERAPY [Concomitant]

REACTIONS (11)
  - ANAPHYLACTIC REACTION [None]
  - APNOEA [None]
  - DISCOMFORT [None]
  - DRUG HYPERSENSITIVITY [None]
  - HISTAMINE LEVEL INCREASED [None]
  - LOSS OF CONSCIOUSNESS [None]
  - PULSE ABSENT [None]
  - RASH [None]
  - SKIN TEST POSITIVE [None]
  - TRYPTASE INCREASED [None]
  - TYPE III IMMUNE COMPLEX MEDIATED REACTION [None]
